FAERS Safety Report 16473065 (Version 7)
Quarter: 2020Q2

REPORT INFORMATION
  Report Type: Report from Study
  Country: BR (occurrence: BR)
  Receive Date: 20190625
  Receipt Date: 20200415
  Transmission Date: 20200713
  Serious: Yes (Other)
  Sender: FDA-Public Use
  Company Number: PHHY2019BR079036

PATIENT
  Age: 48 Year
  Sex: Female

DRUGS (5)
  1. COSENTYX [Suspect]
     Active Substance: SECUKINUMAB
     Indication: PSORIATIC ARTHROPATHY
     Dosage: UNK
     Route: 065
     Dates: start: 20161010, end: 20190828
  2. COSENTYX [Suspect]
     Active Substance: SECUKINUMAB
     Dosage: UNK
     Route: 065
     Dates: start: 20161010, end: 20190828
  3. METHOTREXATE. [Concomitant]
     Active Substance: METHOTREXATE
     Indication: PRODUCT USED FOR UNKNOWN INDICATION
     Dosage: UNK
     Route: 065
  4. COSENTYX [Suspect]
     Active Substance: SECUKINUMAB
     Dosage: UNK
     Route: 065
     Dates: start: 20190215
  5. COSENTYX [Suspect]
     Active Substance: SECUKINUMAB
     Dosage: UNK
     Route: 065
     Dates: start: 20161010, end: 20190828

REACTIONS (22)
  - Malaise [Unknown]
  - Arthralgia [Not Recovered/Not Resolved]
  - Pyrexia [Recovered/Resolved]
  - Decreased immune responsiveness [Unknown]
  - Musculoskeletal stiffness [Unknown]
  - Influenza [Recovered/Resolved]
  - Depressed mood [Not Recovered/Not Resolved]
  - Pneumonia [Recovering/Resolving]
  - Psoriatic arthropathy [Unknown]
  - Influenza [Recovering/Resolving]
  - Stress [Not Recovered/Not Resolved]
  - Oropharyngeal discomfort [Not Recovered/Not Resolved]
  - Inflammation [Unknown]
  - Drug ineffective [Unknown]
  - Pyrexia [Unknown]
  - Bone pain [Unknown]
  - Pain [Unknown]
  - Sinusitis [Recovering/Resolving]
  - Psoriasis [Not Recovered/Not Resolved]
  - Rhinitis [Recovered/Resolved]
  - Nasopharyngitis [Recovered/Resolved]
  - Peripheral swelling [Not Recovered/Not Resolved]

NARRATIVE: CASE EVENT DATE: 201903
